FAERS Safety Report 4342750-1 (Version None)
Quarter: 2004Q2

REPORT INFORMATION
  Report Type: 
  Country: None (occurrence: None)
  Receive Date: 20040416
  Receipt Date: 20040407
  Transmission Date: 20050107
  Serious: Yes (Death, Hospitalization)
  Sender: FDA-Public Use
  Company Number: F01200400747

PATIENT
  Age: 48 Year
  Sex: Female

DRUGS (6)
  1. OXALIPLATIN [Suspect]
     Indication: GASTRIC CANCER
     Dosage: 130 MG/M2   Q3W  ,   INTRAVENOUS NOS , ORAL
     Route: 048
  2. OXALIPLATIN [Suspect]
     Indication: OESOPHAGEAL CARCINOMA
     Dosage: 130 MG/M2   Q3W  ,   INTRAVENOUS NOS , ORAL
     Route: 048
  3. (CAPECITABINE) - TABLET - UNIT DOSE : UNKNOWN [Suspect]
     Dosage: 500 MG/M2   ORAL
     Route: 048
  4. FLUOROURACIL [Suspect]
     Dosage: 200 MG/M2  ,  INTRAVENOUS NOS
     Route: 042
  5. EPIRUBICIN [Suspect]
     Dosage: 50 MG/M2 Q3W, INTRAVENOUS BOLUS
     Route: 040
  6. CISPLATIN [Suspect]
     Dosage: 60 MG/M2   Q3W  ; INTRAVENOUS NOS
     Route: 042

REACTIONS (3)
  - CACHEXIA [None]
  - METASTATIC NEOPLASM [None]
  - VOMITING [None]
